FAERS Safety Report 7907360-5 (Version None)
Quarter: 2011Q4

REPORT INFORMATION
  Report Type: 
  Country: None (occurrence: None)
  Receive Date: 20111110
  Receipt Date: 20111109
  Transmission Date: 20120403
  Serious: Yes (Other)
  Sender: FDA-Public Use
  Company Number: DE-GLAXOSMITHKLINE-D0073318A

PATIENT
  Sex: Male

DRUGS (1)
  1. TROBALT [Suspect]
     Route: 048
     Dates: start: 20110101

REACTIONS (4)
  - SPEECH DISORDER [None]
  - DIZZINESS [None]
  - HALLUCINATION [None]
  - TONGUE PARALYSIS [None]
